FAERS Safety Report 24121424 (Version 1)
Quarter: 2024Q3

REPORT INFORMATION
  Report Type: Spontaneous
  Country: FR (occurrence: FR)
  Receive Date: 20240722
  Receipt Date: 20240722
  Transmission Date: 20241017
  Serious: Yes (Other)
  Sender: FRESENIUS KABI
  Company Number: FR-TAKEDA-2022TUS027580

PATIENT
  Sex: Female

DRUGS (4)
  1. CARBOPLATIN [Suspect]
     Active Substance: CARBOPLATIN
     Indication: Product used for unknown indication
     Dosage: UNK?ROA: UNKNOWN
  2. CYTARABINE [Suspect]
     Active Substance: CYTARABINE
     Indication: Product used for unknown indication
     Dosage: UNK?ROAL UNKNOWN
  3. DEXAMETHASONE [Suspect]
     Active Substance: DEXAMETHASONE
     Indication: Product used for unknown indication
     Dosage: UNK?ROA: UNKNOWN
  4. ADCETRIS [Suspect]
     Active Substance: BRENTUXIMAB VEDOTIN
     Indication: Product used for unknown indication
     Dosage: UNK?ROA: UNKNOWN?FOA: POWDER FOR SOLUTION FOR INJECTION

REACTIONS (5)
  - Hepatotoxicity [Unknown]
  - Hepatitis [Unknown]
  - Diarrhoea [Unknown]
  - Abdominal distension [Unknown]
  - Gastrointestinal toxicity [Unknown]
